FAERS Safety Report 10934267 (Version 1)
Quarter: 2015Q1

REPORT INFORMATION
  Report Type: Spontaneous
  Country: GB (occurrence: GB)
  Receive Date: 20150320
  Receipt Date: 20150320
  Transmission Date: 20150721
  Serious: Yes (Hospitalization, Other)
  Sender: FDA-Public Use
  Company Number: GB-SANOFI-AVENTIS-2012SA042445

PATIENT
  Age: 80 Year
  Sex: Male

DRUGS (6)
  1. IMMUCYST [Suspect]
     Active Substance: BACILLUS CALMETTE-GUERIN SUBSTRAIN CONNAUGHT LIVE ANTIGEN
     Indication: BLADDER CANCER
     Dosage: INSTILLATION OF BCG INTO THE BLADDER
     Route: 043
  2. IMMUCYST [Suspect]
     Active Substance: BACILLUS CALMETTE-GUERIN SUBSTRAIN CONNAUGHT LIVE ANTIGEN
     Indication: BLADDER CANCER
     Dosage: INSTILLATION OF BCG INTO THE BLADDER
     Route: 043
  3. IMMUCYST [Suspect]
     Active Substance: BACILLUS CALMETTE-GUERIN SUBSTRAIN CONNAUGHT LIVE ANTIGEN
     Indication: BLADDER CANCER
     Dosage: INSTILLATION OF BCG INTO THE BLADDER
     Route: 043
  4. IMMUCYST [Suspect]
     Active Substance: BACILLUS CALMETTE-GUERIN SUBSTRAIN CONNAUGHT LIVE ANTIGEN
     Indication: BLADDER CANCER
     Dosage: INSTILLATION OF BCG INTO THE BLADDER
     Route: 043
  5. IMMUCYST [Suspect]
     Active Substance: BACILLUS CALMETTE-GUERIN SUBSTRAIN CONNAUGHT LIVE ANTIGEN
     Indication: BLADDER CANCER
     Dosage: INSTILLATION OF BCG INTO THE BLADDER
     Route: 043
  6. IMMUCYST [Suspect]
     Active Substance: BACILLUS CALMETTE-GUERIN SUBSTRAIN CONNAUGHT LIVE ANTIGEN
     Indication: BLADDER CANCER
     Dosage: INSTILLATION OF BCG INTO THE BLADDER
     Route: 043

REACTIONS (8)
  - Rash pustular [Recovered/Resolved]
  - Pustular psoriasis [Recovered/Resolved]
  - Weight decreased [Unknown]
  - Pulmonary mass [Unknown]
  - Pyrexia [Unknown]
  - Dermatitis exfoliative [Recovered/Resolved]
  - Bovine tuberculosis [Unknown]
  - Malaise [Unknown]
